FAERS Safety Report 5848169-6 (Version None)
Quarter: 2008Q3

REPORT INFORMATION
  Report Type: 
  Country: None (occurrence: None)
  Receive Date: 20080818
  Receipt Date: 20080808
  Transmission Date: 20090109
  Serious: Yes (Disabling)
  Sender: FDA-Public Use
  Company Number: A0742949A

PATIENT
  Age: 74 Year
  Sex: Female

DRUGS (18)
  1. ADVAIR DISKUS 100/50 [Suspect]
     Indication: DRUG USE FOR UNKNOWN INDICATION
     Dosage: 250MCG TWICE PER DAY
  2. ACTONEL [Concomitant]
  3. ASPIRIN [Concomitant]
  4. BETOPTIC [Concomitant]
  5. CALCIUM + VITAMIN D [Concomitant]
  6. CRESTOR [Concomitant]
  7. DILANTIN [Concomitant]
  8. GARLIC [Concomitant]
  9. ISOSORBIDE DINITRATE [Concomitant]
  10. MULTI-VITAMINS [Concomitant]
  11. NADOLOL [Concomitant]
  12. NAPROSYN [Concomitant]
  13. NOVOSEMIDE [Concomitant]
  14. RAMIPRIL [Concomitant]
  15. SALBUTAMOL [Concomitant]
  16. SPIRIVA [Concomitant]
  17. TYLENOL [Concomitant]
  18. VITALUX [Concomitant]

REACTIONS (1)
  - GAIT DISTURBANCE [None]
